FAERS Safety Report 9154882 (Version 2)
Quarter: 2013Q1

REPORT INFORMATION
  Report Type: Spontaneous
  Country: BD (occurrence: BD)
  Receive Date: 20130311
  Receipt Date: 20130326
  Transmission Date: 20140127
  Serious: Yes (Death)
  Sender: FDA-Public Use
  Company Number: PHHY2013BD023323

PATIENT
  Age: 82 Year
  Sex: Male

DRUGS (2)
  1. ACLASTA [Suspect]
     Indication: OSTEOPOROSIS
     Dosage: UNK UKN, UNK
     Route: 042
     Dates: start: 20110407
  2. ACLASTA [Suspect]
     Dosage: UNK ONCE YEARLY
     Route: 042
     Dates: start: 20120404

REACTIONS (1)
  - Death [Fatal]
